FAERS Safety Report 15969573 (Version 2)
Quarter: 2019Q1

REPORT INFORMATION
  Report Type: Spontaneous
  Country: JP (occurrence: JP)
  Receive Date: 20190215
  Receipt Date: 20190221
  Transmission Date: 20190418
  Serious: Yes (Other)
  Sender: FDA-Public Use
  Company Number: JP-009507513-1902JPN001168J

PATIENT
  Age: 88 Year
  Sex: Male
  Weight: 50 kg

DRUGS (13)
  1. CRESTOR [Concomitant]
     Active Substance: ROSUVASTATIN CALCIUM
     Dosage: 5 MILLIGRAM, QD
     Route: 048
     Dates: start: 2013
  2. BAYASPIRIN [Concomitant]
     Active Substance: ASPIRIN
     Dosage: 100 MILLIGRAM, QD
     Route: 048
     Dates: start: 2013
  3. BENIDIPINE HYDROCHLORIDE [Concomitant]
     Active Substance: BENIDIPINE HYDROCHLORIDE
     Dosage: 4 MILLIGRAM, QD
     Route: 048
     Dates: start: 2013
  4. ENALAPRIL [Concomitant]
     Active Substance: ENALAPRIL
     Dosage: 2.5 MILLIGRAM, QD
     Route: 048
     Dates: start: 2013
  5. ALLOPURINOL. [Concomitant]
     Active Substance: ALLOPURINOL
     Dosage: 200 MILLIGRAM, QD
     Route: 048
     Dates: start: 2013
  6. SODIUM RABEPRAZOLE [Concomitant]
     Active Substance: RABEPRAZOLE SODIUM
     Dosage: 10 MILLIGRAM, QD
     Route: 048
     Dates: start: 2013
  7. ARTIST [Concomitant]
     Active Substance: CARVEDILOL
     Dosage: 1.25 MILLIGRAM, QD
     Route: 048
     Dates: start: 2013
  8. PLAVIX [Concomitant]
     Active Substance: CLOPIDOGREL BISULFATE
     Dosage: 75 MILLIGRAM, QD
     Route: 048
     Dates: start: 2013
  9. FUROSEMIDE. [Concomitant]
     Active Substance: FUROSEMIDE
     Dosage: 20 MILLIGRAM, QD
     Route: 048
     Dates: start: 2013
  10. FRANDOL [Concomitant]
     Active Substance: ISOSORBIDE DINITRATE
     Dosage: 40 MILLIGRAM, QD
     Dates: start: 2013
  11. BELSOMRA [Suspect]
     Active Substance: SUVOREXANT
     Indication: INSOMNIA
     Dosage: 15 MILLIGRAM, QD
     Route: 048
     Dates: start: 20180106, end: 20180106
  12. JANUVIA [Concomitant]
     Active Substance: SITAGLIPTIN PHOSPHATE
     Dosage: 50 MILLIGRAM, QD
     Route: 048
     Dates: start: 2013
  13. ZOPICLONE [Concomitant]
     Active Substance: ZOPICLONE
     Indication: INSOMNIA
     Dosage: UNK
     Route: 065
     Dates: start: 20171128

REACTIONS (4)
  - Insomnia [Recovered/Resolved]
  - Poor quality sleep [Recovered/Resolved]
  - Restlessness [Recovered/Resolved]
  - Agitation [Recovered/Resolved]

NARRATIVE: CASE EVENT DATE: 20180106
